FAERS Safety Report 7341775-1 (Version None)
Quarter: 2011Q1

REPORT INFORMATION
  Report Type: 
  Country: None (occurrence: None)
  Receive Date: 20110309
  Receipt Date: 20110304
  Transmission Date: 20110831
  Serious: Yes (Other)
  Sender: FDA-Public Use
  Company Number: US-PFIZER INC-2010182465

PATIENT
  Sex: Female

DRUGS (7)
  1. CHANTIX [Suspect]
     Dosage: STARTER PACK
     Dates: start: 20080601, end: 20080601
  2. APAP TAB [Concomitant]
     Indication: PAIN
     Dosage: UNK
     Dates: start: 20061101, end: 20091001
  3. CHANTIX [Suspect]
     Dosage: STARTER PACK AND CONTINUING PACK
     Dates: start: 20070901, end: 20071201
  4. LORCET-HD [Concomitant]
     Indication: PAIN
     Dosage: UNK
     Dates: start: 20061101, end: 20091001
  5. VICODIN [Concomitant]
     Indication: PAIN
     Dosage: UNK
     Dates: start: 20061101, end: 20091001
  6. CHANTIX [Suspect]
     Indication: SMOKING CESSATION THERAPY
     Dosage: STARTER PACK
     Dates: start: 20070601, end: 20070601
  7. HYDROCODONE [Concomitant]
     Indication: PAIN
     Dosage: UNK
     Dates: start: 20061101, end: 20091001

REACTIONS (8)
  - PANIC ATTACK [None]
  - AGITATION [None]
  - AMNESIA [None]
  - MENTAL DISORDER [None]
  - DEPRESSION [None]
  - ANXIETY [None]
  - SUICIDAL IDEATION [None]
  - AGGRESSION [None]
